FAERS Safety Report 13437248 (Version 2)
Quarter: 2017Q4

REPORT INFORMATION
  Report Type: Report from Study
  Country: FR (occurrence: FR)
  Receive Date: 20170413
  Receipt Date: 20171101
  Transmission Date: 20180320
  Serious: Yes (Hospitalization, Other)
  Sender: FDA-Public Use
  Company Number: FR-ASTELLAS-2017US014060

PATIENT
  Age: 10 Year
  Sex: Female

DRUGS (4)
  1. ERLOTINIB [Suspect]
     Active Substance: ERLOTINIB
     Route: 048
     Dates: start: 20151207, end: 20151228
  2. SOLUPRED                           /00016201/ [Concomitant]
     Active Substance: PREDNISOLONE
     Indication: PRODUCT USED FOR UNKNOWN INDICATION
     Route: 048
  3. ERLOTINIB [Suspect]
     Active Substance: ERLOTINIB
     Indication: GLIOMA
     Dosage: 125 MG, ONCE DAILY (LAST DOSE PRIOR TO ONSET OF SAE ON: 08/FEB/2015)
     Route: 048
     Dates: start: 20150202
  4. RIVOTRIL [Concomitant]
     Active Substance: CLONAZEPAM
     Indication: PRODUCT USED FOR UNKNOWN INDICATION
     Dosage: 2.5 MG/ML, 1 DROP
     Route: 048
     Dates: start: 20141217

REACTIONS (2)
  - Hydrocephalus [Recovered/Resolved]
  - Hydrocephalus [Recovered/Resolved]

NARRATIVE: CASE EVENT DATE: 20150209
